FAERS Safety Report 15877306 (Version 2)
Quarter: 2019Q3

REPORT INFORMATION
  Report Type: Spontaneous
  Country: US (occurrence: US)
  Receive Date: 20190128
  Receipt Date: 20190717
  Transmission Date: 20191004
  Serious: No
  Sender: FDA-Public Use
  Company Number: US-SA-2019SA018859

PATIENT
  Age: 57 Year
  Sex: Male
  Weight: 78.91 kg

DRUGS (6)
  1. DUPIXENT [Suspect]
     Active Substance: DUPILUMAB
     Dosage: 300 MG, QOW
     Route: 058
  2. MOTRIN IB [Concomitant]
     Active Substance: IBUPROFEN
  3. DUPIXENT [Suspect]
     Active Substance: DUPILUMAB
     Indication: DERMATITIS ATOPIC
     Dosage: 300 MG, QOW
     Route: 058
     Dates: start: 201811, end: 20190117
  4. TRIAMCINOLONE ACETONIDE. [Concomitant]
     Active Substance: TRIAMCINOLONE ACETONIDE
  5. AMLODIPINE;ATORVASTATIN [Concomitant]
  6. GOLD BOND ULTIMATE ECZEMA RELIEF [Concomitant]
     Active Substance: OATMEAL

REACTIONS (4)
  - Underdose [Unknown]
  - Erythema [Unknown]
  - Pruritus [Unknown]
  - Device use issue [Unknown]

NARRATIVE: CASE EVENT DATE: 20190703
